FAERS Safety Report 4892281-5 (Version None)
Quarter: 2006Q1

REPORT INFORMATION
  Report Type: 
  Country: None (occurrence: None)
  Receive Date: 20060125
  Receipt Date: 20060125
  Transmission Date: 20060701
  Serious: Yes (Other)
  Sender: FDA-Public Use
  Company Number: None

PATIENT
  Age: 66 Year
  Sex: Female
  Weight: 121.564 kg

DRUGS (4)
  1. CYMBALTA [Suspect]
     Indication: NEUROPATHY PERIPHERAL
     Dosage: ONE CAPSULE DAILY PO
     Route: 048
     Dates: start: 20051222, end: 20060101
  2. CYMBALTA [Suspect]
     Indication: OSTEOARTHRITIS
     Dosage: ONE CAPSULE DAILY PO
     Route: 048
     Dates: start: 20051222, end: 20060101
  3. CYMBALTA [Suspect]
     Indication: PAIN
     Dosage: ONE CAPSULE DAILY PO
     Route: 048
     Dates: start: 20051222, end: 20060101
  4. CYMBALTA [Suspect]
     Indication: POST POLIO SYNDROME
     Dosage: ONE CAPSULE DAILY PO
     Route: 048
     Dates: start: 20051222, end: 20060101

REACTIONS (2)
  - DEPRESSED MOOD [None]
  - FEELING ABNORMAL [None]
